FAERS Safety Report 10861314 (Version 1)
Quarter: 2015Q1

REPORT INFORMATION
  Report Type: Spontaneous
  Country: US (occurrence: US)
  Receive Date: 20150224
  Receipt Date: 20150224
  Transmission Date: 20150721
  Serious: No
  Sender: FDA-Public Use
  Company Number: US-MYLANLABS-2014M1006164

PATIENT
  Age: 67 Year
  Sex: Male
  Weight: 81.63 kg

DRUGS (2)
  1. NISOLDIPINE EXTENDED-RELEASE TABLETS [Suspect]
     Active Substance: NISOLDIPINE
     Indication: HYPERTENSION
     Dosage: 8.5 MG, QD
     Route: 048
     Dates: start: 201406, end: 20140916
  2. NISOLDIPINE EXTENDED-RELEASE TABLETS [Suspect]
     Active Substance: NISOLDIPINE
     Dosage: 17 MG, QD
     Route: 048
     Dates: start: 20140917

REACTIONS (3)
  - Blood pressure fluctuation [Recovered/Resolved]
  - Dizziness [Not Recovered/Not Resolved]
  - Drug ineffective [Recovered/Resolved]

NARRATIVE: CASE EVENT DATE: 201406
